FAERS Safety Report 18032805 (Version 1)
Quarter: 2020Q3

REPORT INFORMATION
  Report Type: Spontaneous
  Country: US (occurrence: US)
  Receive Date: 20200716
  Receipt Date: 20200716
  Transmission Date: 20201103
  Serious: No
  Sender: FDA-Public Use
  Company Number: US-AERIE-US-2020-001423

PATIENT

DRUGS (3)
  1. RHOPRESSA [Suspect]
     Active Substance: NETARSUDIL MESYLATE
     Indication: ANGLE CLOSURE GLAUCOMA
     Dosage: 2 GTT DROPS, QHS
     Route: 047
     Dates: start: 201907
  2. BRIMONIDINE TARTRATE. [Concomitant]
     Active Substance: BRIMONIDINE TARTRATE
     Indication: OCULAR HYPERTENSION
     Dosage: 2 GTT DROPS, TID
     Route: 047
     Dates: start: 1994
  3. TIMOLOL MALEATE. [Concomitant]
     Active Substance: TIMOLOL MALEATE
     Indication: ANGLE CLOSURE GLAUCOMA
     Dosage: 2 GTT DROPS, QAM
     Route: 047
     Dates: start: 201908

REACTIONS (2)
  - Off label use [Unknown]
  - Conjunctivitis allergic [Not Recovered/Not Resolved]

NARRATIVE: CASE EVENT DATE: 201907
